FAERS Safety Report 24351947 (Version 1)
Quarter: 2024Q3

REPORT INFORMATION
  Report Type: Spontaneous
  Country: HN (occurrence: HN)
  Receive Date: 20240923
  Receipt Date: 20240923
  Transmission Date: 20241017
  Serious: No
  Sender: ROCHE
  Company Number: HN-ROCHE-3572026

PATIENT
  Sex: Female

DRUGS (1)
  1. HERCEPTIN [Suspect]
     Active Substance: TRASTUZUMAB
     Indication: Breast cancer
     Dosage: DOSE AND FREQUENCY WERE NOT REPORTED - TWO APPLICATIONS
     Route: 065

REACTIONS (2)
  - Pleural effusion [Unknown]
  - Ascites [Unknown]
